FAERS Safety Report 7902079-9 (Version None)
Quarter: 2011Q4

REPORT INFORMATION
  Report Type: 
  Country: None (occurrence: None)
  Receive Date: 20111108
  Receipt Date: 20111101
  Transmission Date: 20120403
  Serious: Yes (Death, Life-Threatening)
  Sender: FDA-Public Use
  Company Number: JP-GENZYME-THYM-1002877

PATIENT
  Sex: Male
  Weight: 75 kg

DRUGS (6)
  1. FUROSEMIDE [Concomitant]
     Indication: ACUTE GRAFT VERSUS HOST DISEASE
     Dosage: UNK
     Dates: start: 20091001, end: 20091210
  2. ITRACONAZOLE [Concomitant]
     Indication: INFECTION PROPHYLAXIS
     Dosage: UNK
     Dates: start: 20091119, end: 20091210
  3. GANCICLOVIR [Concomitant]
     Indication: CYTOMEGALOVIRUS VIRAEMIA
     Dosage: UNK
  4. PREDNISOLONE SODIUM SUCCINATE INJ [Concomitant]
     Indication: PREMEDICATION
     Dosage: UNK
     Dates: start: 20091103, end: 20091106
  5. FOSCARNET SODIUM [Concomitant]
     Indication: CYTOMEGALOVIRUS VIRAEMIA
     Dosage: UNK
     Dates: start: 20091121, end: 20091210
  6. THYMOGLOBULIN [Suspect]
     Indication: ACUTE GRAFT VERSUS HOST DISEASE
     Dosage: 275 MG, QD
     Route: 042
     Dates: start: 20091103, end: 20091106

REACTIONS (3)
  - ACUTE GRAFT VERSUS HOST DISEASE [None]
  - LUNG INFECTION PSEUDOMONAL [None]
  - PSEUDOMONAL SEPSIS [None]
